FAERS Safety Report 9183381 (Version 2)
Quarter: 2013Q2

REPORT INFORMATION
  Report Type: Report from Study
  Country: US (occurrence: US)
  Receive Date: 20130322
  Receipt Date: 20130522
  Transmission Date: 20140414
  Serious: Yes (Other)
  Sender: FDA-Public Use
  Company Number: US-NAPPMUNDI-USA-2013-0099979

PATIENT
  Sex: Female

DRUGS (7)
  1. OXYCONTIN (NDA 22-272) [Suspect]
     Indication: BACK PAIN
     Dosage: 40 MG, Q8H
     Route: 048
  2. OXYCONTIN (NDA 22-272) [Suspect]
     Indication: ARTHRALGIA
  3. GABAPENTIN [Suspect]
     Indication: NEUROPATHY PERIPHERAL
     Dosage: 1600 MG, TID
     Route: 048
  4. GABAPENTIN [Suspect]
     Dosage: 800 MG, TID
     Route: 048
  5. LORTAB /00607101/ [Suspect]
     Indication: BACK PAIN
     Dosage: 7.5 MG, TID PRN
     Route: 048
  6. LOSARTAN [Concomitant]
     Indication: PRODUCT USED FOR UNKNOWN INDICATION
     Dosage: 25 MG, BID
     Route: 048
  7. ZANAFLEX [Concomitant]
     Indication: PRODUCT USED FOR UNKNOWN INDICATION
     Dosage: 2 MG, TID PRN, 1-2 TABLETS
     Route: 048

REACTIONS (4)
  - Foot fracture [Unknown]
  - Nerve injury [Unknown]
  - Fall [Unknown]
  - Hypoaesthesia [Unknown]
